FAERS Safety Report 5518910-0 (Version None)
Quarter: 2007Q4

REPORT INFORMATION
  Report Type: 
  Country: None (occurrence: None)
  Receive Date: 20071114
  Receipt Date: 20071031
  Transmission Date: 20080405
  Serious: Yes (Hospitalization)
  Sender: FDA-Public Use
  Company Number: 1-15464415

PATIENT
  Age: 15 Year
  Sex: Male

DRUGS (2)
  1. SOLODYN [Suspect]
     Indication: ACNE
     Dosage: 90 MG ORALLY DAILY
     Route: 048
     Dates: start: 20070806
  2. DIFFERIN (ADAPALENE) CREAM 0.1% [Concomitant]

REACTIONS (3)
  - HYPERSENSITIVITY [None]
  - LYMPHADENOPATHY [None]
  - RENAL FAILURE ACUTE [None]
